FAERS Safety Report 18795691 (Version 1)
Quarter: 2021Q1

REPORT INFORMATION
  Report Type: Spontaneous
  Country: US (occurrence: US)
  Receive Date: 20210127
  Receipt Date: 20210127
  Transmission Date: 20210419
  Serious: Yes (Hospitalization, Other)
  Sender: FDA-Public Use
  Company Number: US-PURDUE-USA-2020-0199591

PATIENT
  Age: 46 Year
  Sex: Female

DRUGS (7)
  1. DILAUDID [Suspect]
     Active Substance: HYDROMORPHONE HYDROCHLORIDE
     Indication: PRODUCT USED FOR UNKNOWN INDICATION
     Dosage: UNK
     Route: 048
  2. TRAMADOL. [Suspect]
     Active Substance: TRAMADOL
     Indication: PRODUCT USED FOR UNKNOWN INDICATION
     Dosage: 50 MG, UNK
     Route: 048
  3. OXYCODONE HCL TABLETS (RHODES 91?490) [Suspect]
     Active Substance: OXYCODONE HYDROCHLORIDE
     Indication: PAIN
     Dosage: 15 MG, UNK
     Route: 048
     Dates: start: 200101
  4. CARISOPRODOL. [Suspect]
     Active Substance: CARISOPRODOL
     Indication: PAIN
     Dosage: UNK
     Route: 065
     Dates: start: 200101
  5. HYDROCODONE BITARTRATE/ACETAMINOPHEN [Suspect]
     Active Substance: ACETAMINOPHEN\HYDROCODONE BITARTRATE
     Indication: PAIN
     Dosage: UNK
     Route: 048
     Dates: start: 200101
  6. TOPAMAX [Suspect]
     Active Substance: TOPIRAMATE
     Indication: PAIN
     Dosage: 200 MG, UNK
     Route: 065
     Dates: start: 200101
  7. SOMA [Suspect]
     Active Substance: CARISOPRODOL
     Indication: PAIN
     Dosage: 350 MG, UNK
     Route: 065
     Dates: start: 200101

REACTIONS (22)
  - Vomiting [Unknown]
  - Dizziness [Unknown]
  - Hyperhidrosis [Unknown]
  - Nausea [Unknown]
  - Lacunar infarction [Unknown]
  - Somnolence [Unknown]
  - Constipation [Unknown]
  - Myocardial infarction [Unknown]
  - Diarrhoea [Unknown]
  - Muscle disorder [Unknown]
  - Cerebrovascular accident [Unknown]
  - Tooth loss [Unknown]
  - Syncope [Unknown]
  - Loss of consciousness [Unknown]
  - Hypotension [Unknown]
  - Visual impairment [Unknown]
  - Dry mouth [Unknown]
  - Asthenia [Unknown]
  - Abdominal discomfort [Unknown]
  - Frequent bowel movements [Unknown]
  - Supraventricular tachycardia [Unknown]
  - Headache [Unknown]

NARRATIVE: CASE EVENT DATE: 20100923
